FAERS Safety Report 25912425 (Version 2)
Quarter: 2025Q4

REPORT INFORMATION
  Report Type: Spontaneous
  Country: US (occurrence: US)
  Receive Date: 20251013
  Receipt Date: 20251019
  Transmission Date: 20260119
  Serious: No
  Sender: AMGEN
  Company Number: US-AMGEN-USASP2025202194

PATIENT
  Age: 82 Year
  Sex: Female

DRUGS (11)
  1. OTEZLA [Suspect]
     Active Substance: APREMILAST
     Indication: Psoriatic arthropathy
     Dosage: 30 MILLIGRAM, BID
     Route: 048
     Dates: start: 20250412, end: 202506
  2. CLARITIN [Concomitant]
     Active Substance: LORATADINE
     Dosage: UNK
  3. FOLIC ACID [Concomitant]
     Active Substance: FOLIC ACID
     Dosage: UNK
  4. MAGNESIUM [Concomitant]
     Active Substance: MAGNESIUM
     Dosage: UNK
  5. VITAMINS [Concomitant]
     Active Substance: VITAMINS
     Dosage: UNK
  6. Osteo-bi-flex [Concomitant]
     Dosage: UNK
  7. HERBALS\TURMERIC [Concomitant]
     Active Substance: HERBALS\TURMERIC
     Dosage: UNK
  8. ZINC [Concomitant]
     Active Substance: ZINC
     Dosage: UNK
  9. GABAPENTIN [Concomitant]
     Active Substance: GABAPENTIN
  10. AMLODIPINE [Concomitant]
     Active Substance: AMLODIPINE BESYLATE
  11. TALTZ [Concomitant]
     Active Substance: IXEKIZUMAB
     Dosage: 80 MILLIGRAM, Q4WK
     Route: 058
     Dates: start: 20250916

REACTIONS (2)
  - Therapy interrupted [Unknown]
  - Arthralgia [Not Recovered/Not Resolved]

NARRATIVE: CASE EVENT DATE: 20250601
